FAERS Safety Report 8797629 (Version 2)
Quarter: 2015Q1

REPORT INFORMATION
  Report Type: Report from Study
  Country: US (occurrence: US)
  Receive Date: 20120919
  Receipt Date: 20150312
  Transmission Date: 20150721
  Serious: Yes (Death)
  Sender: FDA-Public Use
  Company Number: US-ROCHE-1103803

PATIENT
  Sex: Female

DRUGS (17)
  1. ZOMETA [Concomitant]
     Active Substance: ZOLEDRONIC ACID
     Route: 065
  2. ANZEMET [Concomitant]
     Active Substance: DOLASETRON MESYLATE
     Route: 065
  3. NEURONTIN [Concomitant]
     Active Substance: GABAPENTIN
     Indication: PAIN
  4. FENTANYL. [Suspect]
     Active Substance: FENTANYL
     Indication: PRODUCT USED FOR UNKNOWN INDICATION
     Route: 065
  5. TYLENOL [Concomitant]
     Active Substance: ACETAMINOPHEN
  6. AXID (UNITED STATES) [Concomitant]
  7. PROTONIX (UNITED STATES) [Concomitant]
  8. AVASTIN [Suspect]
     Active Substance: BEVACIZUMAB
     Indication: BREAST CANCER FEMALE
     Route: 042
     Dates: start: 20050503
  9. GRANISETRON [Concomitant]
     Active Substance: GRANISETRON
  10. DECADRON [Concomitant]
     Active Substance: DEXAMETHASONE
     Route: 065
  11. GABAPENTIN. [Concomitant]
     Active Substance: GABAPENTIN
     Route: 065
  12. AROMASIN [Concomitant]
     Active Substance: EXEMESTANE
  13. PLAVIX [Concomitant]
     Active Substance: CLOPIDOGREL BISULFATE
  14. CODEINE [Concomitant]
     Active Substance: CODEINE
  15. GEMZAR [Concomitant]
     Active Substance: GEMCITABINE HYDROCHLORIDE
     Route: 065
  16. GLYCOLAX [Concomitant]
     Active Substance: POLYETHYLENE GLYCOL 3350
  17. TAXOTERE [Suspect]
     Active Substance: DOCETAXEL
     Indication: PRODUCT USED FOR UNKNOWN INDICATION
     Route: 042

REACTIONS (25)
  - Feeling cold [Unknown]
  - Malaise [Unknown]
  - Peripheral swelling [Unknown]
  - Metastases to pelvis [Unknown]
  - Pain in extremity [Unknown]
  - Fatigue [Unknown]
  - Depression [Unknown]
  - Pelvic fracture [Unknown]
  - Neuropathy peripheral [Unknown]
  - Burning sensation [Unknown]
  - Hypoaesthesia [Unknown]
  - Musculoskeletal stiffness [Unknown]
  - Constipation [Unknown]
  - Headache [Unknown]
  - Productive cough [Unknown]
  - Off label use [Unknown]
  - Arthralgia [Unknown]
  - White blood cell count decreased [Unknown]
  - Oedema peripheral [Unknown]
  - Death [Fatal]
  - Neck pain [Unknown]
  - Pruritus [Recovered/Resolved]
  - Contusion [Unknown]
  - Musculoskeletal chest pain [Unknown]
  - Weight decreased [Unknown]
